FAERS Safety Report 7645791-1 (Version None)
Quarter: 2011Q3

REPORT INFORMATION
  Report Type: 
  Country: None (occurrence: None)
  Receive Date: 20110729
  Receipt Date: 20110721
  Transmission Date: 20111222
  Serious: Yes (Other)
  Sender: FDA-Public Use
  Company Number: JP-PFIZER INC-2011156010

PATIENT
  Age: 69 Year
  Sex: Male
  Weight: 63 kg

DRUGS (3)
  1. PRORENAL [Concomitant]
     Dosage: UNK
     Dates: start: 20110513, end: 20110522
  2. CELECOXIB [Suspect]
     Dosage: 100 MG, 2X/DAY
     Route: 048
     Dates: start: 20110513, end: 20110522
  3. MUCOSTA [Concomitant]
     Dosage: UNK
     Dates: start: 20110513, end: 20110522

REACTIONS (1)
  - DRUG ERUPTION [None]
